FAERS Safety Report 25601422 (Version 1)
Quarter: 2025Q3

REPORT INFORMATION
  Report Type: Spontaneous
  Country: GB (occurrence: GB)
  Receive Date: 20250724
  Receipt Date: 20250724
  Transmission Date: 20251020
  Serious: Yes (Disabling, Other)
  Sender: AUROBINDO
  Company Number: GB-MHRA-MED-202507142130434500-RNTSC

PATIENT
  Age: 66 Year
  Sex: Female
  Weight: 50 kg

DRUGS (1)
  1. ACYCLOVIR [Suspect]
     Active Substance: ACYCLOVIR
     Indication: Herpes zoster
     Route: 065
     Dates: start: 202410

REACTIONS (1)
  - Metamorphopsia [Not Recovered/Not Resolved]

NARRATIVE: CASE EVENT DATE: 20241001
